FAERS Safety Report 10939239 (Version 2)
Quarter: 2015Q2

REPORT INFORMATION
  Report Type: Spontaneous
  Country: US (occurrence: US)
  Receive Date: 20150322
  Receipt Date: 20150525
  Transmission Date: 20150821
  Serious: No
  Sender: FDA-Public Use
  Company Number: US-JNJFOC-20140116235

PATIENT
  Age: 47 Year
  Sex: Female

DRUGS (1)
  1. NUCYNTA ER [Suspect]
     Active Substance: TAPENTADOL HYDROCHLORIDE
     Indication: PAIN
     Dosage: TWICE DAILY
     Route: 048

REACTIONS (2)
  - Somnolence [Recovered/Resolved]
  - Hypersomnia [Recovered/Resolved]
